FAERS Safety Report 8796625 (Version 1)
Quarter: 2012Q4

REPORT INFORMATION
  Report Type: 
  Country: KR (occurrence: KR)
  Receive Date: 20120919
  Receipt Date: 20120919
  Transmission Date: 20130627
  Serious: Yes (Death)
  Sender: FDA-Public Use
  Company Number: KR-BAXTER-2012BAX017253

PATIENT

DRUGS (3)
  1. ENDOXAN INJ 500MG [Suspect]
     Indication: BONE MARROW FAILURE
     Route: 042
  2. CYCLOSPORINE [Concomitant]
     Indication: PROPHYLAXIS
     Route: 042
  3. ATG                                /00575401/ [Concomitant]
     Indication: BONE MARROW FAILURE
     Route: 042

REACTIONS (2)
  - Pneumonia bacterial [Fatal]
  - Pulmonary toxicity [None]
